FAERS Safety Report 6704855-7 (Version None)
Quarter: 2010Q2

REPORT INFORMATION
  Report Type: 
  Country: None (occurrence: None)
  Receive Date: 20100430
  Receipt Date: 20100219
  Transmission Date: 20101027
  Serious: No
  Sender: FDA-Public Use
  Company Number: US-ASTRAZENECA-2010SE07748

PATIENT
  Sex: Female

DRUGS (1)
  1. NEXIUM [Suspect]
     Route: 048
     Dates: start: 20070101

REACTIONS (14)
  - ARTHRALGIA [None]
  - BLOOD PRESSURE INCREASED [None]
  - DEPRESSION [None]
  - DIZZINESS [None]
  - DRY MOUTH [None]
  - DRY SKIN [None]
  - FEELING OF BODY TEMPERATURE CHANGE [None]
  - FLUSHING [None]
  - HEART RATE INCREASED [None]
  - ORTHOSTATIC HYPOTENSION [None]
  - PANCREATIC ENZYMES INCREASED [None]
  - POLLAKIURIA [None]
  - RASH [None]
  - THROAT IRRITATION [None]
